FAERS Safety Report 8690822 (Version 7)
Quarter: 2013Q2

REPORT INFORMATION
  Report Type: Spontaneous
  Country: US (occurrence: US)
  Receive Date: 20120729
  Receipt Date: 20130412
  Transmission Date: 20140414
  Serious: Yes (Hospitalization, Disabling, Other)
  Sender: FDA-Public Use
  Company Number: US-009507513-1207USA005865

PATIENT
  Sex: Female
  Weight: 50.79 kg

DRUGS (6)
  1. FOSAMAX [Suspect]
     Indication: OSTEOPENIA
     Dosage: 10 MG, UNK
     Route: 048
     Dates: start: 199604, end: 200010
  2. FOSAMAX [Suspect]
     Indication: OSTEOPOROSIS
     Dosage: 70 MG, UNK
     Route: 048
     Dates: start: 200010, end: 200603
  3. FOSAMAX [Suspect]
     Dosage: 70 MG, UNK
     Route: 048
     Dates: start: 200805
  4. ALENDRONATE SODIUM [Suspect]
     Indication: OSTEOPENIA
     Dosage: 70 MG, UNK
     Route: 048
     Dates: start: 200808, end: 201009
  5. ALENDRONATE SODIUM [Suspect]
     Indication: OSTEOPOROSIS
  6. BONIVA [Suspect]
     Indication: OSTEOPENIA
     Dosage: 150 MG, UNK
     Route: 048
     Dates: start: 200604, end: 200804

REACTIONS (55)
  - Pathological fracture [Recovering/Resolving]
  - Open reduction of fracture [Recovering/Resolving]
  - Bone cancer [Unknown]
  - Debridement [Unknown]
  - Osteomyelitis [Not Recovered/Not Resolved]
  - Osteonecrosis of jaw [Not Recovered/Not Resolved]
  - Oral infection [Unknown]
  - Impaired healing [Unknown]
  - Periodontal disease [Unknown]
  - Abscess [Unknown]
  - Fistula discharge [Unknown]
  - Hypertension [Unknown]
  - Spinal disorder [Unknown]
  - Macular degeneration [Unknown]
  - Retinal detachment [Unknown]
  - Intraocular lens implant [Unknown]
  - Jaw cyst [Unknown]
  - Toothache [Unknown]
  - Tooth disorder [Unknown]
  - Drug intolerance [Unknown]
  - Gastrointestinal disorder [Unknown]
  - Alveolar osteitis [Not Recovered/Not Resolved]
  - Abscess [Unknown]
  - Haemorrhage [Unknown]
  - Tooth loss [Unknown]
  - Dental necrosis [Unknown]
  - Cardiac disorder [Recovered/Resolved]
  - Dyspnoea [Unknown]
  - Pneumonia [Unknown]
  - Transfusion [Unknown]
  - Arthritis [Unknown]
  - Oral fibroma [Unknown]
  - Mouth cyst [Unknown]
  - Dental caries [Unknown]
  - Tooth fracture [Unknown]
  - Tooth extraction [Unknown]
  - Dental caries [Unknown]
  - Sensitivity of teeth [Unknown]
  - Tooth fracture [Unknown]
  - Tooth extraction [Unknown]
  - Gingival recession [Unknown]
  - Gingival bleeding [Unknown]
  - Device breakage [Unknown]
  - Periodontal inflammation [Unknown]
  - Dental plaque [Unknown]
  - Ocular hyperaemia [Unknown]
  - Spinal osteoarthritis [Unknown]
  - Back pain [Unknown]
  - Chronic obstructive pulmonary disease [Unknown]
  - Lung disorder [Unknown]
  - Scoliosis [Unknown]
  - Eye laser surgery [Unknown]
  - Decreased appetite [Unknown]
  - Eye pain [Unknown]
  - VIIth nerve paralysis [Unknown]
